FAERS Safety Report 15425414 (Version 3)
Quarter: 2019Q3

REPORT INFORMATION
  Report Type: Report from Study
  Country: US (occurrence: US)
  Receive Date: 20180925
  Receipt Date: 20190805
  Transmission Date: 20191004
  Serious: Yes (Hospitalization, Other)
  Sender: FDA-Public Use
  Company Number: US-SAKK-2018SA236443AA

PATIENT
  Age: 90 Year
  Sex: Female

DRUGS (6)
  1. JANUVIA [Concomitant]
     Active Substance: SITAGLIPTIN PHOSPHATE
     Dosage: UNK UNK, UNK
  2. PREDNISONE. [Concomitant]
     Active Substance: PREDNISONE
     Dosage: UNK UNK, UNK
  3. INSULIN GLARGINE [Suspect]
     Active Substance: INSULIN GLARGINE
     Dosage: 22 U, QD
     Route: 058
  4. INSULIN GLARGINE [Suspect]
     Active Substance: INSULIN GLARGINE
     Indication: DIABETES MELLITUS
     Dosage: 18 U, QD (IF BLOOD SUGAR IS } 80)
     Route: 058
     Dates: start: 201803
  5. INSULIN GLARGINE [Suspect]
     Active Substance: INSULIN GLARGINE
     Dosage: 30 U, QD
     Route: 058
     Dates: start: 2018
  6. GLIPIZIDE. [Concomitant]
     Active Substance: GLIPIZIDE
     Dosage: UNK UNK, UNK

REACTIONS (5)
  - Cerebrovascular accident [Recovered/Resolved]
  - Visual impairment [Not Recovered/Not Resolved]
  - Internal haemorrhage [Recovered/Resolved]
  - Anaemia [Recovering/Resolving]
  - Osteoporosis [Recovered/Resolved]

NARRATIVE: CASE EVENT DATE: 201803
